FAERS Safety Report 7533805-9 (Version None)
Quarter: 2011Q2

REPORT INFORMATION
  Report Type: 
  Country: None (occurrence: None)
  Receive Date: 20110608
  Receipt Date: 20110525
  Transmission Date: 20111010
  Serious: Yes (Hospitalization)
  Sender: FDA-Public Use
  Company Number: JP-GENENTECH-317773

PATIENT
  Age: 42 Year
  Sex: Male

DRUGS (3)
  1. MEDROL [Concomitant]
     Indication: PRODUCT USED FOR UNKNOWN INDICATION
  2. XOLAIR [Suspect]
     Indication: ASTHMA
     Dosage: 300 MG, Q4W
     Route: 058
     Dates: start: 20101008
  3. MEDROL [Concomitant]

REACTIONS (2)
  - NASOPHARYNGITIS [None]
  - CARDIAC FAILURE CONGESTIVE [None]
